FAERS Safety Report 9491008 (Version 2)
Quarter: 2013Q4

REPORT INFORMATION
  Report Type: Spontaneous
  Country: US (occurrence: US)
  Receive Date: 20130830
  Receipt Date: 20131007
  Transmission Date: 20140711
  Serious: No
  Sender: FDA-Public Use
  Company Number: US-PFIZER INC-2013248740

PATIENT
  Age: 66 Year
  Sex: 0

DRUGS (20)
  1. LYRICA [Suspect]
     Dosage: 100 MG, 3X/DAY
     Route: 048
  2. ZOCOR [Concomitant]
     Dosage: 40 MG, 1 EVERY DAY
  3. FLOMAX [Concomitant]
     Dosage: 0.4 MG, 1X/DAY (1 QHS)
  4. SINEMET [Concomitant]
     Dosage: 25MG-100MG, 1 OR 2 QHS
  5. AMBIEN [Concomitant]
     Indication: SLEEP DISORDER
     Dosage: 10 MG, AS NEEDED (1 QHS)
     Route: 048
  6. FEXOFENADINE HYDROCHLORIDE [Concomitant]
     Dosage: 180 MG, 1X/DAY (1 DAILY)
  7. GLIMEPIRIDE [Concomitant]
     Indication: DIABETES MELLITUS
     Dosage: 2 MG, 2X/DAY (WITH FOOD)
  8. PERCOCET [Concomitant]
     Indication: PAIN
     Dosage: 10MG-325MG, AS NEEDED (1 TABLET Q 2 TO 4 HOURS)
  9. ATENOLOL W/CHLORTALIDONE [Concomitant]
     Dosage: 50MG-25MG, DAILY (1 TABLET)
     Route: 048
  10. LEVODOPA-CARBIDOPA [Concomitant]
     Dosage: 50MG-200MG, 1 EVERY DAY AT BEDTIME
  11. MOBIC [Concomitant]
     Dosage: 7.5 MG, 2X/DAY (PRN)
  12. FLUTICASONE PROPIONATE [Concomitant]
     Dosage: 100 UG, DAILY (1 SPRAY TO EACH NOSTRIL, 50MCG/1 ACTUATION)
     Route: 045
  13. INDOCIN [Concomitant]
     Dosage: 50 MG, 3X/DAY
     Route: 048
  14. PYRIDIUM [Concomitant]
     Dosage: 200 MG, AS NEEDED (EVERY 8 HRS)
  15. VESICARE [Concomitant]
     Dosage: 5 MG, 1X/DAY (DAILY)
  16. ASA [Concomitant]
     Dosage: 81 MG, DAILY
  17. FISH OIL [Concomitant]
     Dosage: 2400 MG, 2 (1200MG) TABLET AT NIGHT
  18. HYDROXYZINE HYDROCHLORIDE [Concomitant]
     Dosage: 10 MG, AS NEEDED (1 OR 2 Q 6 HRS)
  19. PERMETHRIN [Concomitant]
     Dosage: 5% CREAM APPLY AS DIRECTED
  20. VITAMIN D3 [Concomitant]
     Dosage: 1 DF (5000), DAILY

REACTIONS (6)
  - Actinic keratosis [Unknown]
  - Narcolepsy [Unknown]
  - Skin papilloma [Unknown]
  - Calculus urinary [Unknown]
  - Pollakiuria [Unknown]
  - Vitamin D deficiency [Unknown]
